FAERS Safety Report 7645124-0 (Version None)
Quarter: 2011Q3

REPORT INFORMATION
  Report Type: 
  Country: None (occurrence: None)
  Receive Date: 20110729
  Receipt Date: 20110725
  Transmission Date: 20111222
  Serious: Yes (Death)
  Sender: FDA-Public Use
  Company Number: PHHY2011US67698

PATIENT
  Sex: Female

DRUGS (15)
  1. NEXIUM [Concomitant]
     Dosage: 40 MG, BID
  2. ZOMETA [Suspect]
     Dosage: 04 MG, QMO
     Route: 042
  3. TOPROL-XL [Concomitant]
     Dosage: 50 MG, QD
  4. XANAX [Concomitant]
     Dosage: 0.5- 01 DF, BID
  5. METAMUCIL-2 [Concomitant]
     Dosage: UNK UKN, PRN
  6. OXYCODONE HCL EXTENDED-RELEASE [Concomitant]
     Dosage: 40 MG EVERY 12 HRS
  7. FEMARA [Suspect]
     Dosage: 2.5 MG, QD
  8. CLARINEX [Concomitant]
     Dosage: UNK UKN, UNK
  9. CYMBALTA [Concomitant]
     Dosage: 60 MG, QD
  10. SENNA [Concomitant]
     Dosage: 01 DF, BID PRN
  11. SYNTHROID [Concomitant]
     Dosage: 25 UG, QD
  12. AMITRIPTYLINE HCL [Concomitant]
     Dosage: 50 MG, QD
  13. NYSTATIN [Concomitant]
     Dosage: 1000 U/ML, UNK
  14. SALAGEN [Concomitant]
     Dosage: 01 DF, TID
  15. TRIAMCINOLONE ACETONIDE [Concomitant]
     Indication: SKIN DISORDER
     Dosage: 03 TIMES A DAY

REACTIONS (1)
  - DEATH [None]
